FAERS Safety Report 5723313-X (Version None)
Quarter: 2008Q2

REPORT INFORMATION
  Report Type: 
  Country: None (occurrence: None)
  Receive Date: 20080430
  Receipt Date: 20080425
  Transmission Date: 20081010
  Serious: Yes (Death, Hospitalization)
  Sender: FDA-Public Use
  Company Number: PHHO2007PL17375

PATIENT
  Age: 57 Year
  Sex: Male

DRUGS (8)
  1. COMTESS [Suspect]
     Indication: PARKINSON'S DISEASE
     Dosage: 200 MG
     Dates: start: 20070322
  2. LEVODOPA [Suspect]
  3. TRIHEXYPHENIDYL HYDROCHLORIDE [Concomitant]
  4. ZOPICLONE [Concomitant]
  5. CLONAZEPAM [Concomitant]
  6. PERINDOPRIL ERBUMINE [Concomitant]
  7. HALOPERIDOL [Suspect]
  8. DIAZEPAM [Suspect]

REACTIONS (7)
  - CARDIOPULMONARY FAILURE [None]
  - DELUSION [None]
  - DYSPNOEA [None]
  - HALLUCINATION [None]
  - HYPOTENSION [None]
  - MUSCLE RIGIDITY [None]
  - PSYCHOTIC DISORDER [None]
